FAERS Safety Report 16333783 (Version 2)
Quarter: 2019Q2

REPORT INFORMATION
  Report Type: Spontaneous
  Country: BR (occurrence: BR)
  Receive Date: 20190520
  Receipt Date: 20190617
  Transmission Date: 20190711
  Serious: Yes (Other)
  Sender: FDA-Public Use
  Company Number: BR-UCBSA-2019020262

PATIENT
  Sex: Male
  Weight: 86 kg

DRUGS (9)
  1. NEUPRO [Suspect]
     Active Substance: ROTIGOTINE
     Indication: PARKINSON^S DISEASE
     Dosage: 6 MILLIGRAM, ONCE DAILY (QD)
     Route: 062
     Dates: start: 2015, end: 2015
  2. PROLOPA [Concomitant]
     Active Substance: BENSERAZIDE\LEVODOPA
     Indication: PARKINSON^S DISEASE
     Dosage: 100/25MG 5 TABLETS PER DAY.
     Route: 048
     Dates: start: 201312
  3. PROLOPA HBS [Concomitant]
     Active Substance: BENSERAZIDE\LEVODOPA
     Indication: PARKINSON^S DISEASE
     Dosage: UNK
     Route: 048
     Dates: start: 2017
  4. AKINETON [Concomitant]
     Active Substance: BIPERIDEN HYDROCHLORIDE
     Indication: PARKINSON^S DISEASE
     Dosage: 1 MILLIGRAM, 6X/DAY
     Route: 048
     Dates: start: 2015
  5. NEUPRO [Suspect]
     Active Substance: ROTIGOTINE
     Dosage: 6 MG ONCE DAILY
     Route: 062
  6. NEUPRO [Suspect]
     Active Substance: ROTIGOTINE
     Dosage: 2 MG ONCE DAILY
     Route: 062
  7. NEUPRO [Suspect]
     Active Substance: ROTIGOTINE
     Dosage: 4 MG ONCE DAILY
     Route: 062
  8. RIVOTRIL [Concomitant]
     Active Substance: CLONAZEPAM
     Indication: ANTIDEPRESSANT THERAPY
     Dosage: 1.5 MILLIGRAM, UNK
     Route: 048
     Dates: start: 2016
  9. NEUPRO [Suspect]
     Active Substance: ROTIGOTINE
     Dosage: 8 MG ONCE DAILY
     Route: 062
     Dates: start: 2015

REACTIONS (8)
  - Burns third degree [Recovered/Resolved]
  - Headache [Not Recovered/Not Resolved]
  - Constipation [Not Recovered/Not Resolved]
  - Product adhesion issue [Unknown]
  - Depression [Not Recovered/Not Resolved]
  - Parkinson^s disease [Not Recovered/Not Resolved]
  - Product dose omission [Unknown]
  - Dizziness [Not Recovered/Not Resolved]

NARRATIVE: CASE EVENT DATE: 2015
